FAERS Safety Report 8946968 (Version 1)
Quarter: 2012Q4

REPORT INFORMATION
  Report Type: 
  Country: US (occurrence: US)
  Receive Date: 20121205
  Receipt Date: 20121205
  Transmission Date: 20130627
  Serious: No
  Sender: FDA-Public Use
  Company Number: US-009507513-1212USA001057

PATIENT
  Age: 58 Year
  Sex: Female
  Weight: 57.14 kg

DRUGS (1)
  1. JANUVIA [Suspect]
     Indication: BLOOD GLUCOSE INCREASED
     Dosage: 1 DF, qd
     Route: 048
     Dates: start: 20121120

REACTIONS (3)
  - Mood altered [Unknown]
  - Depressed mood [Unknown]
  - Headache [Unknown]
